FAERS Safety Report 21902606 (Version 3)
Quarter: 2024Q4

REPORT INFORMATION
  Report Type: Spontaneous
  Country: FR (occurrence: FR)
  Receive Date: 20230124
  Receipt Date: 20241224
  Transmission Date: 20250114
  Serious: Yes (Death)
  Sender: DECIPHERA PHARMACEUTICALS
  Company Number: FR-DECIPHERA PHARMACEUTICALS LLC-2022FR000935

PATIENT
  Age: 72 Year
  Sex: Female
  Weight: 58 kg

DRUGS (4)
  1. QINLOCK [Suspect]
     Active Substance: RIPRETINIB
     Indication: Gastrointestinal stromal tumour
     Dosage: 150 MILLIGRAM, QD
     Route: 048
     Dates: start: 20220905, end: 20221024
  2. ACETAMINOPHEN [Concomitant]
     Active Substance: ACETAMINOPHEN
     Indication: Supportive care
     Dosage: UNK
  3. BROMAZEPAM [Concomitant]
     Active Substance: BROMAZEPAM
     Indication: Supportive care
     Dosage: UNK
  4. GLIVEC [Concomitant]
     Active Substance: IMATINIB MESYLATE
     Indication: Product used for unknown indication
     Dosage: 400 MILLIGRAM
     Dates: start: 2013

REACTIONS (1)
  - Disease progression [Fatal]
